FAERS Safety Report 4853887-2 (Version None)
Quarter: 2005Q4

REPORT INFORMATION
  Report Type: 
  Country: None (occurrence: None)
  Receive Date: 20051213
  Receipt Date: 20051204
  Transmission Date: 20060501
  Serious: Yes (Other)
  Sender: FDA-Public Use
  Company Number: 2005163368

PATIENT
  Age: 50 Year
  Sex: Male
  Weight: 90.7194 kg

DRUGS (1)
  1. BENADRYL [Suspect]
     Indication: HYPERSENSITIVITY
     Dosage: 1 ULTRATAB EVERY 4-6 HOURS DAILY, ORAL
     Route: 048
     Dates: start: 20040101

REACTIONS (3)
  - DRUG DEPENDENCE [None]
  - SWELLING FACE [None]
  - VOMITING [None]
